FAERS Safety Report 5991088-5 (Version None)
Quarter: 2008Q4

REPORT INFORMATION
  Report Type: 
  Country: None (occurrence: None)
  Receive Date: 20081209
  Receipt Date: 20081124
  Transmission Date: 20090506
  Serious: Yes (Death)
  Sender: FDA-Public Use
  Company Number: KV200800503

PATIENT
  Age: 65 Year
  Sex: Male

DRUGS (9)
  1. ISOSORBIDE DINITRATE [Suspect]
     Indication: ATRIOVENTRICULAR BLOCK
     Dosage: 60 MG, 1 1/2 TAB BID, ORAL
     Route: 048
     Dates: end: 20081001
  2. PLAVIX [Concomitant]
  3. POTASSIUM CHLORIDE [Concomitant]
  4. LISINOPRIL (LISONIPRIL) [Concomitant]
  5. COREG [Concomitant]
  6. VYTORIN [Concomitant]
  7. LEVOTHYROXINE SODIUM [Concomitant]
  8. SPIRONOLACTONE [Concomitant]
  9. XANAX [Concomitant]

REACTIONS (4)
  - COMPLETED SUICIDE [None]
  - GUN SHOT WOUND [None]
  - INTENTIONAL SELF-INJURY [None]
  - PRODUCT QUALITY ISSUE [None]
